FAERS Safety Report 18157098 (Version 1)
Quarter: 2020Q3

REPORT INFORMATION
  Report Type: Spontaneous
  Country: US (occurrence: US)
  Receive Date: 20200817
  Receipt Date: 20200817
  Transmission Date: 20201103
  Serious: Yes (Other)
  Sender: FDA-Public Use
  Company Number: US-TEVA-2020-US-1814468

PATIENT
  Age: 62 Year
  Sex: Female

DRUGS (16)
  1. QUETIAPINE 100MG [Concomitant]
     Active Substance: QUETIAPINE
  2. VITAMIN D 5000IU [Concomitant]
  3. TRAMADOL 50MG [Concomitant]
     Active Substance: TRAMADOL
  4. DITROPAN XL 5MG [Concomitant]
  5. CEVIMELINE 30MG [Concomitant]
     Active Substance: CEVIMELINE
  6. VITAMIN E 150MG [Concomitant]
  7. METOPROLOL 25MG [Concomitant]
     Active Substance: METOPROLOL
  8. AUSTEDO [Suspect]
     Active Substance: DEUTETRABENAZINE
     Indication: TARDIVE DYSKINESIA
     Route: 048
     Dates: start: 20200108
  9. BACLOFEN 10MG [Concomitant]
     Active Substance: BACLOFEN
  10. GABAPENTIN 400MG [Concomitant]
     Active Substance: GABAPENTIN
  11. AUSTEDO [Suspect]
     Active Substance: DEUTETRABENAZINE
     Dosage: 12 MILLIGRAM DAILY;
     Route: 048
  12. DIVALPROEX DR 500MG [Concomitant]
  13. ZALEPLON 10 MG [Concomitant]
     Active Substance: ZALEPLON
     Dosage: PRN, HASN^T BEEN NEEDING LATELY
  14. BUSPIRONE 30MG [Concomitant]
  15. BENZTROPINE 1MG [Concomitant]
     Active Substance: BENZTROPINE
  16. LEVOTHYROXINE 88MCG [Concomitant]
     Active Substance: LEVOTHYROXINE

REACTIONS (2)
  - Fatigue [Unknown]
  - Somnambulism [Unknown]

NARRATIVE: CASE EVENT DATE: 20200806
